FAERS Safety Report 9114071 (Version 1)
Quarter: 2013Q1

REPORT INFORMATION
  Report Type: Spontaneous
  Country: US (occurrence: US)
  Receive Date: 20130208
  Receipt Date: 20130208
  Transmission Date: 20140127
  Serious: No
  Sender: FDA-Public Use
  Company Number: US-PFIZER INC-2013049554

PATIENT
  Age: 71 Year
  Sex: Female

DRUGS (5)
  1. LIPITOR [Suspect]
     Dosage: UNK
  2. LISINOPRIL [Suspect]
     Dosage: UNK
  3. LATUDA [Concomitant]
     Dosage: 120 MG, ONCE DAILY
  4. ZETIA [Concomitant]
     Dosage: 10 MG, ONCE DAILY
  5. BYSTOLIC [Concomitant]
     Dosage: 10 MG, ONCE DAILY
     Dates: start: 20130124

REACTIONS (2)
  - Drug hypersensitivity [Recovered/Resolved]
  - Rash [Recovered/Resolved]
